FAERS Safety Report 4466387-9 (Version None)
Quarter: 2004Q3

REPORT INFORMATION
  Report Type: 
  Country: None (occurrence: None)
  Receive Date: 20040930
  Receipt Date: 20040917
  Transmission Date: 20050211
  Serious: Yes (Hospitalization)
  Sender: FDA-Public Use
  Company Number: A03200403207

PATIENT
  Age: 82 Year
  Sex: Female
  Weight: 65.318 kg

DRUGS (3)
  1. PLAVIX [Suspect]
     Indication: ISCHAEMIC STROKE
     Dosage: 75 MG QD - ORAL
     Route: 048
     Dates: start: 19990101
  2. FUROSEMIDE [Concomitant]
  3. ROFECOXIB [Concomitant]

REACTIONS (2)
  - CELLULITIS [None]
  - OPEN WOUND [None]
